FAERS Safety Report 20665191 (Version 3)
Quarter: 2025Q1

REPORT INFORMATION
  Report Type: Spontaneous
  Country: JP (occurrence: JP)
  Receive Date: 20220401
  Receipt Date: 20250120
  Transmission Date: 20250409
  Serious: Yes (Hospitalization, Disabling, Other)
  Sender: MERCK
  Company Number: JP-MSD-M2020-09865

PATIENT
  Age: 74 Year
  Sex: Male

DRUGS (1)
  1. KEYTRUDA [Suspect]
     Active Substance: PEMBROLIZUMAB
     Indication: Transitional cell carcinoma
     Dosage: 200 MILLIGRAM, Q3W
     Route: 041
     Dates: start: 201909, end: 202004

REACTIONS (3)
  - Immune-mediated optic neuritis [Not Recovered/Not Resolved]
  - Immune-mediated hepatitis [Recovered/Resolved]
  - Immune-mediated myocarditis [Unknown]

NARRATIVE: CASE EVENT DATE: 20200401
